FAERS Safety Report 7419967-2 (Version None)
Quarter: 2011Q2

REPORT INFORMATION
  Report Type: 
  Country: None (occurrence: None)
  Receive Date: 20110418
  Receipt Date: 20110408
  Transmission Date: 20111010
  Serious: Yes (Hospitalization)
  Sender: FDA-Public Use
  Company Number: US-BIOGENIDEC-2011BI013366

PATIENT
  Age: 49 Year
  Sex: Female

DRUGS (1)
  1. AVONEX [Suspect]
     Indication: MULTIPLE SCLEROSIS
     Route: 030
     Dates: start: 20100924, end: 20110401

REACTIONS (7)
  - INJECTION SITE PAIN [None]
  - VAGINAL HAEMORRHAGE [None]
  - CONTUSION [None]
  - VISION BLURRED [None]
  - VITREOUS FLOATERS [None]
  - MULTIPLE SCLEROSIS RELAPSE [None]
  - HYPERTHYROIDISM [None]
